FAERS Safety Report 5043363-9 (Version None)
Quarter: 2006Q2

REPORT INFORMATION
  Report Type: 
  Country: None (occurrence: None)
  Receive Date: 20060629
  Receipt Date: 20050513
  Transmission Date: 20061013
  Serious: Yes (Life-Threatening, Hospitalization)
  Sender: FDA-Public Use
  Company Number: 20050500122

PATIENT
  Age: 67 Year
  Sex: Male

DRUGS (7)
  1. HEPARIN SODIUM [Suspect]
     Dosage: 5000 ; IV
     Route: 042
     Dates: start: 20040707
  2. NITROGLYCERIN IN DEXTROSE 5% [Suspect]
     Dosage: 200 UG; ONCE; IC
     Dates: start: 20040707, end: 20040707
  3. LOVENOX [Suspect]
     Dosage: 1 MGKG; SC
     Route: 058
     Dates: start: 20040707, end: 20040707
  4. INTEGRILIN [Suspect]
     Dosage: 6.8 ML; BOLUS; IV; SEE IMAGE
     Route: 040
     Dates: start: 20040707, end: 20040707
  5. INTEGRILIN [Suspect]
     Dosage: 6.8 ML; BOLUS; IV; SEE IMAGE
     Route: 040
     Dates: start: 20040707, end: 20040707
  6. INTEGRILIN [Suspect]
     Dosage: 6.8 ML; BOLUS; IV; SEE IMAGE
     Route: 040
     Dates: start: 20040707, end: 20040707
  7. ASPIRIN [Suspect]
     Dates: start: 20050707

REACTIONS (3)
  - CEREBROVASCULAR ACCIDENT [None]
  - DYSARTHRIA [None]
  - HYPOTENSION [None]
